FAERS Safety Report 6055183-7 (Version None)
Quarter: 2009Q1

REPORT INFORMATION
  Report Type: 
  Country: None (occurrence: None)
  Receive Date: 20090128
  Receipt Date: 20090122
  Transmission Date: 20090719
  Serious: Yes (Hospitalization)
  Sender: FDA-Public Use
  Company Number: US-JNJFOC-20090106167

PATIENT
  Sex: Female
  Weight: 107.96 kg

DRUGS (1)
  1. FENTANYL TRANSDERMAL SYSTEM [Suspect]
     Indication: CERVICAL SPINAL STENOSIS
     Route: 062

REACTIONS (5)
  - BRONCHITIS [None]
  - DEVICE LEAKAGE [None]
  - DYSPNOEA [None]
  - INADEQUATE ANALGESIA [None]
  - OXYGEN SATURATION DECREASED [None]
